FAERS Safety Report 5472280-5 (Version None)
Quarter: 2007Q3

REPORT INFORMATION
  Report Type: 
  Country: None (occurrence: None)
  Receive Date: 20070925
  Receipt Date: 20070912
  Transmission Date: 20080115
  Serious: Yes (Death, Hospitalization)
  Sender: FDA-Public Use
  Company Number: 161529USA

PATIENT
  Age: 5 Month
  Sex: Female
  Weight: 5.3 kg

DRUGS (5)
  1. PROPOFOL [Suspect]
     Indication: INDUCTION OF ANAESTHESIA
     Dosage: 15 MG, INTRAVENOUS (NOT OTHERWISE SPECIFIED)
     Route: 042
  2. PROPOFOL [Suspect]
     Indication: INTUBATION
     Dosage: 15 MG, INTRAVENOUS (NOT OTHERWISE SPECIFIED)
     Route: 042
  3. SEVOFLURANE [Suspect]
     Indication: INDUCTION OF ANAESTHESIA
     Dosage: UP TO 3%
  4. NITROUS OXIDE [Suspect]
     Indication: INDUCTION OF ANAESTHESIA
  5. ROCURONIUM BROMIDE [Suspect]
     Indication: INDUCTION OF ANAESTHESIA

REACTIONS (8)
  - CARDIAC ARREST [None]
  - HEART RATE INCREASED [None]
  - HYPOCALCAEMIA [None]
  - HYPOXIC ENCEPHALOPATHY [None]
  - OXYGEN SATURATION DECREASED [None]
  - TORSADE DE POINTES [None]
  - VENTRICULAR FIBRILLATION [None]
  - VENTRICULAR TACHYCARDIA [None]
